FAERS Safety Report 22390189 (Version 4)
Quarter: 2023Q4

REPORT INFORMATION
  Report Type: Spontaneous
  Country: US (occurrence: US)
  Receive Date: 20230531
  Receipt Date: 20231129
  Transmission Date: 20240110
  Serious: Yes (Hospitalization, Other)
  Sender: FDA-Public Use
  Company Number: US-PFIZER INC-202300202529

PATIENT
  Age: 34 Year
  Sex: Male

DRUGS (2)
  1. VOXELOTOR [Suspect]
     Active Substance: VOXELOTOR
     Dosage: 500MG/3 TABLETS BY MOUTH ONCE DAILY
     Route: 048
  2. VOXELOTOR [Suspect]
     Active Substance: VOXELOTOR
     Dosage: 500MG/3 TABLETS BY MOUTH ONCE DAILY
     Route: 048

REACTIONS (1)
  - Sickle cell anaemia with crisis [Not Recovered/Not Resolved]
